FAERS Safety Report 11411192 (Version 2)
Quarter: 2015Q3

REPORT INFORMATION
  Report Type: Spontaneous
  Country: US (occurrence: US)
  Receive Date: 20150821
  Receipt Date: 20150903
  Transmission Date: 20151125
  Serious: No
  Sender: FDA-Public Use
  Company Number: US-ELI_LILLY_AND_COMPANY-US201004004366

PATIENT
  Sex: Female

DRUGS (2)
  1. HUMALOG [Suspect]
     Active Substance: INSULIN LISPRO
  2. HUMULIN N [Suspect]
     Active Substance: INSULIN HUMAN

REACTIONS (4)
  - Injection site pain [Unknown]
  - Injection site discolouration [Unknown]
  - Skin disorder [Unknown]
  - Exposure during pregnancy [Unknown]
